FAERS Safety Report 10488632 (Version 1)
Quarter: 2014Q4

REPORT INFORMATION
  Report Type: Spontaneous
  Country: US (occurrence: US)
  Receive Date: 20141002
  Receipt Date: 20141002
  Transmission Date: 20150528
  Serious: Yes (Hospitalization, Other)
  Sender: FDA-Public Use
  Company Number: US-AMGEN-USASP2014074664

PATIENT
  Age: 56 Year
  Sex: Male

DRUGS (1)
  1. ENBREL [Suspect]
     Active Substance: ETANERCEPT
     Indication: PSORIASIS
     Dosage: 50 MG, QWK
     Route: 065
     Dates: start: 20100520, end: 20140808

REACTIONS (3)
  - Abdominal hernia [Recovered/Resolved]
  - Malaise [Recovered/Resolved]
  - Gastric banding [Recovered/Resolved]

NARRATIVE: CASE EVENT DATE: 201409
